FAERS Safety Report 20688234 (Version 3)
Quarter: 2022Q2

REPORT INFORMATION
  Report Type: Spontaneous
  Country: US (occurrence: US)
  Receive Date: 20220408
  Receipt Date: 20220518
  Transmission Date: 20220721
  Serious: Yes (Other)
  Sender: FDA-Public Use
  Company Number: US-ORGANON-O2204USA000351

PATIENT
  Sex: Female
  Weight: 99.773 kg

DRUGS (3)
  1. NEXPLANON [Suspect]
     Active Substance: ETONOGESTREL
     Indication: Contraception
     Dosage: 1 IMPLANT OF 68 MG EVERY 3 YEARS IN LEFT UPPER ARM
     Route: 059
     Dates: start: 20220318, end: 20220401
  2. IRON [Concomitant]
     Active Substance: IRON
     Dosage: UNK
  3. PRENATAL [ASCORBIC ACID;CALCIUM CARBONATE;CALCIUM PANTOTHENATE;COPPER [Concomitant]
     Dosage: UNK

REACTIONS (10)
  - Device expulsion [Recovered/Resolved]
  - Implant site erosion [Recovered/Resolved]
  - Implant site erythema [Recovered/Resolved]
  - Implant site infection [Unknown]
  - Device placement issue [Recovered/Resolved]
  - Complication of device insertion [Recovered/Resolved]
  - Device deployment issue [Recovered/Resolved]
  - Wrong technique in device usage process [Unknown]
  - Device malfunction [Unknown]
  - Poor quality device used [Unknown]

NARRATIVE: CASE EVENT DATE: 20220101
